FAERS Safety Report 7961894-6 (Version None)
Quarter: 2011Q4

REPORT INFORMATION
  Report Type: 
  Country: None (occurrence: None)
  Receive Date: 20111207
  Receipt Date: 20111128
  Transmission Date: 20120403
  Serious: Yes (Death, Hospitalization)
  Sender: FDA-Public Use
  Company Number: FR-ROCHE-1017160

PATIENT
  Sex: Female
  Weight: 82 kg

DRUGS (8)
  1. MABTHERA [Suspect]
     Indication: B-CELL LYMPHOMA
     Dosage: LAST DOSE PRIOR TO SAE: 06 SEPTEMBER 2010, FORM: NOT REPORTED
     Route: 042
     Dates: start: 20100630
  2. METHYLPREDNISOLONE [Suspect]
     Indication: B-CELL LYMPHOMA
     Dosage: LAST DOSE PRIOR TO SAE: 12 SEPTEMBER 2010, FORM: NOT REPORTED
     Route: 042
     Dates: start: 20100701
  3. VINCRISTINE [Suspect]
     Indication: B-CELL LYMPHOMA
     Dosage: LAST DOSE PRIOR TO SAE: 27 JULY 2010, FORM: NOT REPORTED
     Route: 042
     Dates: start: 20100701
  4. METHOTREXATE [Suspect]
     Indication: B-CELL LYMPHOMA
     Dosage: LAST DOSE PRIOR TO SAE: 07 SEPTEMBER 2010, FORM: NOT REPORTED
     Route: 042
     Dates: start: 20100701
  5. CYCLOPHOSPHAMIDE [Suspect]
     Indication: B-CELL LYMPHOMA
     Dosage: LAST DOSE PRIOR TO SAE: 30 JULY 2010, FORM: NOT REPORTED
     Route: 042
     Dates: start: 20100702
  6. CYTARABINE [Suspect]
     Dosage: LAST DOSE PRIOR TO SAE: 08 SEPTEMBER 2010
     Route: 037
     Dates: start: 20100623
  7. DOXORUBICIN HCL [Suspect]
     Indication: B-CELL LYMPHOMA
     Dosage: LAST DOSE PRIOR TO SAE: 28 JULY 2010, FORM: NOT REPORTED
     Route: 042
     Dates: start: 20100702
  8. CYTARABINE [Suspect]
     Indication: B-CELL LYMPHOMA
     Dosage: LAST DOSE PRIOR TO SAE: 12 SEPTEMBER 2010, FORM: NOT REPORTED
     Route: 042
     Dates: start: 20100818

REACTIONS (1)
  - NERVOUS SYSTEM DISORDER [None]
